FAERS Safety Report 17300487 (Version 1)
Quarter: 2020Q1

REPORT INFORMATION
  Report Type: Spontaneous
  Country: US (occurrence: US)
  Receive Date: 20200122
  Receipt Date: 20200122
  Transmission Date: 20200409
  Serious: No
  Sender: FDA-Public Use
  Company Number: US-ALLERGAN-1940604US

PATIENT

DRUGS (1)
  1. RESTASIS [Suspect]
     Active Substance: CYCLOSPORINE
     Indication: PRODUCT USED FOR UNKNOWN INDICATION
     Dosage: UNK UNK, BID
     Route: 047
     Dates: start: 20190930

REACTIONS (7)
  - Eye discharge [Unknown]
  - Conjunctivitis [Unknown]
  - Lacrimation increased [Unknown]
  - Hypersensitivity [Unknown]
  - Eye pain [Unknown]
  - Eye swelling [Unknown]
  - Herpes ophthalmic [Unknown]

NARRATIVE: CASE EVENT DATE: 20191004
